FAERS Safety Report 10200026 (Version 1)
Quarter: 2014Q2

REPORT INFORMATION
  Report Type: Spontaneous
  Country: US (occurrence: US)
  Receive Date: 20140527
  Receipt Date: 20140527
  Transmission Date: 20141212
  Serious: No
  Sender: FDA-Public Use
  Company Number: US-NOVEN-14US008807

PATIENT
  Age: 6 Year
  Sex: Male
  Weight: 22.68 kg

DRUGS (1)
  1. DAYTRANA [Suspect]
     Indication: ATTENTION DEFICIT/HYPERACTIVITY DISORDER
     Dosage: 10 MG, UNKNOWN
     Route: 062
     Dates: start: 20140202, end: 20140202

REACTIONS (5)
  - Bruxism [Recovered/Resolved]
  - Dyskinesia [Recovered/Resolved]
  - Application site erythema [Recovered/Resolved]
  - Drug administered at inappropriate site [Recovered/Resolved]
  - Drug prescribing error [Recovered/Resolved]
